FAERS Safety Report 18953629 (Version 1)
Quarter: 2021Q1

REPORT INFORMATION
  Report Type: Spontaneous
  Country: US (occurrence: US)
  Receive Date: 20210301
  Receipt Date: 20210301
  Transmission Date: 20210420
  Serious: Yes (Other)
  Sender: FDA-Public Use
  Company Number: None

PATIENT
  Sex: Male
  Weight: 132.3 kg

DRUGS (10)
  1. ZOFRAN [Concomitant]
     Active Substance: ONDANSETRON HYDROCHLORIDE
  2. LISINOPRIL. [Concomitant]
     Active Substance: LISINOPRIL
  3. HYDROXYZINE [Concomitant]
     Active Substance: HYDROXYZINE HYDROCHLORIDE
  4. ASPIRIN. [Concomitant]
     Active Substance: ASPIRIN
  5. CARVEDILOL. [Concomitant]
     Active Substance: CARVEDILOL
  6. IBUPROFEN. [Concomitant]
     Active Substance: IBUPROFEN
  7. PHENYTOIN. [Concomitant]
     Active Substance: PHENYTOIN
  8. NOVOLOG [Concomitant]
     Active Substance: INSULIN ASPART
  9. SIMVASTATIN. [Concomitant]
     Active Substance: SIMVASTATIN
  10. MEKTOVI [Suspect]
     Active Substance: BINIMETINIB
     Indication: LUNG NEOPLASM MALIGNANT
     Dates: start: 20201105

REACTIONS (1)
  - Disease progression [None]
